FAERS Safety Report 4900608-0 (Version None)
Quarter: 2006Q1

REPORT INFORMATION
  Report Type: 
  Country: None (occurrence: None)
  Receive Date: 20060131
  Receipt Date: 20060120
  Transmission Date: 20060701
  Serious: Yes (Hospitalization, Other)
  Sender: FDA-Public Use
  Company Number: 2006005077

PATIENT
  Sex: Female

DRUGS (2)
  1. TIKOSYN [Suspect]
     Indication: ILL-DEFINED DISORDER
  2. ED A-HIST DM (CHLORPHENAMINE MALEATE, DEXTROMETHORPHAN HYDROBROMIDE, [Suspect]
     Indication: COUGH
     Dosage: ORAL
     Route: 048
     Dates: start: 20060105

REACTIONS (3)
  - ATRIAL FIBRILLATION [None]
  - NAUSEA [None]
  - PNEUMONIA [None]
